FAERS Safety Report 5473718-X (Version None)
Quarter: 2007Q4

REPORT INFORMATION
  Report Type: 
  Country: None (occurrence: None)
  Receive Date: 20071001
  Receipt Date: 20070919
  Transmission Date: 20080405
  Serious: Yes (Hospitalization, Other)
  Sender: FDA-Public Use
  Company Number: US-PFIZER INC-2007008833

PATIENT
  Sex: Male
  Weight: 109.3 kg

DRUGS (2)
  1. GEODON [Suspect]
     Indication: BIPOLAR I DISORDER
     Dates: start: 20060501, end: 20060601
  2. GEODON [Suspect]
     Indication: PSYCHOTIC DISORDER

REACTIONS (23)
  - AFFECT LABILITY [None]
  - AGITATION [None]
  - ANGER [None]
  - ANXIETY [None]
  - BLOOD TESTOSTERONE ABNORMAL [None]
  - CONVULSION [None]
  - DELUSION [None]
  - DEPRESSED MOOD [None]
  - DEPRESSION [None]
  - DRUG DEPENDENCE [None]
  - DRUG INEFFECTIVE [None]
  - DRUG RESISTANCE [None]
  - FEAR [None]
  - HALLUCINATION [None]
  - HOMICIDAL IDEATION [None]
  - HOSTILITY [None]
  - IRRITABILITY [None]
  - LACRIMATION INCREASED [None]
  - MANIA [None]
  - NERVOUSNESS [None]
  - OBSESSIVE-COMPULSIVE DISORDER [None]
  - PANIC REACTION [None]
  - ROAD TRAFFIC ACCIDENT [None]
